FAERS Safety Report 8995358 (Version 1)
Quarter: 2013Q1

REPORT INFORMATION
  Report Type: Spontaneous
  Country: US (occurrence: US)
  Receive Date: 20130103
  Receipt Date: 20130103
  Transmission Date: 20140127
  Serious: No
  Sender: FDA-Public Use
  Company Number: US-ABBOTT-12P-163-0923695-00

PATIENT
  Sex: Male
  Weight: 78.09 kg

DRUGS (3)
  1. SYNTHROID [Suspect]
     Indication: HORMONE REPLACEMENT THERAPY
     Dates: start: 201202
  2. LEVOTHYROXINE [Suspect]
     Indication: PRODUCT USED FOR UNKNOWN INDICATION
  3. AVAPRO [Concomitant]
     Indication: HYPERTENSION

REACTIONS (3)
  - Diabetes mellitus [Not Recovered/Not Resolved]
  - Bronchitis [Recovering/Resolving]
  - Therapeutic response unexpected [Not Recovered/Not Resolved]
